FAERS Safety Report 5064994-6 (Version None)
Quarter: 2006Q3

REPORT INFORMATION
  Report Type: 
  Country: None (occurrence: None)
  Receive Date: 20060728
  Receipt Date: 20060628
  Transmission Date: 20061208
  Serious: Yes (Hospitalization, Other)
  Sender: FDA-Public Use
  Company Number: FR-ABBOTT-06P-056-0337083-00

PATIENT
  Age: 77 Year
  Sex: Female

DRUGS (1)
  1. VERCYTE [Suspect]
     Indication: DRUG USE FOR UNKNOWN INDICATION
     Dates: start: 20050115, end: 20060515

REACTIONS (2)
  - MYELOFIBROSIS [None]
  - PANCYTOPENIA [None]
